FAERS Safety Report 6513059-2 (Version None)
Quarter: 2009Q4

REPORT INFORMATION
  Report Type: 
  Country: None (occurrence: None)
  Receive Date: 20091222
  Receipt Date: 20091222
  Transmission Date: 20100525
  Serious: Yes (Other)
  Sender: FDA-Public Use
  Company Number: None

PATIENT
  Sex: Male
  Weight: 104 kg

DRUGS (3)
  1. LUNESTA [Suspect]
     Indication: INSOMNIA
     Dosage: 1 QHS PRN PO
     Route: 048
     Dates: start: 20091112, end: 20091112
  2. LISINOPRIL AND HYDROCHLOROTHIAZIDE [Concomitant]
  3. AMILODIPINE [Concomitant]

REACTIONS (4)
  - ANGER [None]
  - DISSOCIATION [None]
  - HOSTILITY [None]
  - SOCIAL PROBLEM [None]
